FAERS Safety Report 18287928 (Version 1)
Quarter: 2020Q3

REPORT INFORMATION
  Report Type: Spontaneous
  Country: US (occurrence: US)
  Receive Date: 20200919
  Receipt Date: 20200919
  Transmission Date: 20201103
  Serious: Yes (Life-Threatening, Other)
  Sender: FDA-Public Use
  Company Number: None

PATIENT
  Age: 32 Year
  Sex: Female
  Weight: 112.5 kg

DRUGS (1)
  1. MONTELUKAST (GENERIC SINGULAIR) [Suspect]
     Active Substance: MONTELUKAST SODIUM
     Indication: ASTHMA
     Dates: start: 20180306, end: 20191217

REACTIONS (8)
  - Mental disorder [None]
  - Depression [None]
  - Withdrawal syndrome [None]
  - Eye pain [None]
  - Hypersomnia [None]
  - Negative thoughts [None]
  - Headache [None]
  - Decreased appetite [None]

NARRATIVE: CASE EVENT DATE: 20200916
